FAERS Safety Report 18693449 (Version 2)
Quarter: 2021Q1

REPORT INFORMATION
  Report Type: Spontaneous
  Country: US (occurrence: US)
  Receive Date: 20210104
  Receipt Date: 20210106
  Transmission Date: 20210419
  Serious: No
  Sender: FDA-Public Use
  Company Number: US-SA-2020SA373869

PATIENT

DRUGS (1)
  1. DUPIXENT [Suspect]
     Active Substance: DUPILUMAB
     Indication: DERMATITIS ATOPIC
     Dosage: UNK
     Dates: start: 202008

REACTIONS (4)
  - Pain in extremity [Unknown]
  - Burning sensation [Unknown]
  - Blister [Unknown]
  - Treatment failure [Unknown]

NARRATIVE: CASE EVENT DATE: 2020
